FAERS Safety Report 26067772 (Version 2)
Quarter: 2025Q4

REPORT INFORMATION
  Report Type: Spontaneous
  Country: US (occurrence: US)
  Receive Date: 20251120
  Receipt Date: 20251201
  Transmission Date: 20260119
  Serious: No
  Sender: LEO PHARM
  Company Number: US-LEO Pharma-384174

PATIENT
  Age: 39 Year
  Sex: Female

DRUGS (1)
  1. ADBRY [Suspect]
     Active Substance: TRALOKINUMAB-LDRM
     Indication: Dermatitis atopic
     Route: 058

REACTIONS (4)
  - Injection site swelling [Recovered/Resolved]
  - Injection site pruritus [Recovered/Resolved]
  - Peripheral swelling [Unknown]
  - Injection site pain [Recovered/Resolved]
